FAERS Safety Report 8398589-3 (Version None)
Quarter: 2012Q2

REPORT INFORMATION
  Report Type: 
  Country: None (occurrence: None)
  Receive Date: 20120531
  Receipt Date: 20120521
  Transmission Date: 20120825
  Serious: Yes (Hospitalization)
  Sender: FDA-Public Use
  Company Number: US-BRISTOL-MYERS SQUIBB COMPANY-16612798

PATIENT
  Age: 58 Year
  Sex: Male
  Weight: 65 kg

DRUGS (2)
  1. CISPLATIN [Suspect]
     Indication: OESOPHAGEAL ADENOCARCINOMA
     Dosage: NO OF COURSES TO DATE:4; LAST DOSE WAS ON 14MAY12
     Dates: start: 20120423
  2. TAXOL [Suspect]
     Indication: OESOPHAGEAL ADENOCARCINOMA
     Dosage: NO OF COURSES TO DATE:4; LAST DOSE WAS ON 14MAY12
     Dates: start: 20120423

REACTIONS (2)
  - ATRIAL FLUTTER [None]
  - EMBOLISM [None]
